FAERS Safety Report 6195079-3 (Version None)
Quarter: 2009Q2

REPORT INFORMATION
  Report Type: 
  Country: None (occurrence: None)
  Receive Date: 20090514
  Receipt Date: 20090428
  Transmission Date: 20091009
  Serious: Yes (Death)
  Sender: FDA-Public Use
  Company Number: 2009PL000190

PATIENT
  Sex: 0

DRUGS (1)
  1. AZATHIOPRINE [Suspect]
     Indication: VASCULITIS
     Dosage: 2.0 MG/KG; QD; PO
     Route: 048

REACTIONS (2)
  - HEPATITIS TOXIC [None]
  - PULMONARY EMBOLISM [None]
